FAERS Safety Report 7971593-2 (Version None)
Quarter: 2011Q4

REPORT INFORMATION
  Report Type: 
  Country: None (occurrence: None)
  Receive Date: 20111212
  Receipt Date: 20111205
  Transmission Date: 20120403
  Serious: Yes (Other)
  Sender: FDA-Public Use
  Company Number: BR-PFIZER INC-2011297062

PATIENT
  Age: 59 Year
  Sex: Female
  Weight: 60 kg

DRUGS (6)
  1. TRIBULUS [Concomitant]
     Indication: HORMONE REPLACEMENT THERAPY
  2. VARENICLINE TARTRATE [Suspect]
     Indication: SMOKING CESSATION THERAPY
     Dosage: UNK
     Route: 048
     Dates: start: 20111115, end: 20110101
  3. SERTRALINE HYDROCHLORIDE [Concomitant]
     Indication: ANTIDEPRESSANT THERAPY
     Dosage: 50 MG, 1X/DAY, IN THE MORNING
     Dates: start: 20110301
  4. ESTRIOL [Concomitant]
     Indication: HORMONE REPLACEMENT THERAPY
     Dosage: UNK
     Dates: start: 20111125
  5. TRIBULUS [Concomitant]
     Indication: HORMONE THERAPY
     Dosage: 250 MG, 1X/DAY
     Dates: start: 20111125
  6. VARENICLINE TARTRATE [Suspect]
     Dosage: UNK, 2X/DAY
     Route: 048
     Dates: start: 20110101

REACTIONS (4)
  - GINGIVAL DISORDER [None]
  - IRRITABILITY [None]
  - DEPRESSION [None]
  - ANXIETY [None]
